FAERS Safety Report 5470206-1 (Version None)
Quarter: 2007Q3

REPORT INFORMATION
  Report Type: 
  Country: None (occurrence: None)
  Receive Date: 20070927
  Receipt Date: 20070920
  Transmission Date: 20080115
  Serious: Yes (Other)
  Sender: FDA-Public Use
  Company Number: IE-ABBOTT-07P-229-0366617-00

PATIENT
  Sex: Male

DRUGS (3)
  1. EPILIM SYRUP [Suspect]
     Indication: CONVULSION
     Route: 048
     Dates: start: 20070101
  2. EPILIM SYRUP [Suspect]
     Route: 048
     Dates: start: 20070218
  3. EPILIM SYRUP [Suspect]
     Route: 048
     Dates: start: 20070101, end: 20070101

REACTIONS (7)
  - BLISTER [None]
  - ERYTHEMA [None]
  - IRRITABILITY [None]
  - RASH [None]
  - RASH MACULAR [None]
  - RASH PUSTULAR [None]
  - WOUND SECRETION [None]
